FAERS Safety Report 19605903 (Version 3)
Quarter: 2021Q3

REPORT INFORMATION
  Report Type: Report from Study
  Country: US (occurrence: US)
  Receive Date: 20210723
  Receipt Date: 20210921
  Transmission Date: 20211014
  Serious: Yes (Other)
  Sender: FDA-Public Use
  Company Number: US-REGENERON PHARMACEUTICALS, INC.-2021-70997

PATIENT

DRUGS (2)
  1. EYLEA [Suspect]
     Active Substance: AFLIBERCEPT
     Indication: CYSTOID MACULAR OEDEMA
     Dosage: LAST DOSE ADMINISTERED, LEFT EYE
     Route: 031
     Dates: start: 20191206, end: 20191206
  2. EYLEA [Suspect]
     Active Substance: AFLIBERCEPT
     Indication: RADIATION RETINOPATHY
     Dosage: TOTAL OF EYLEA DOSES:30
     Route: 031
     Dates: start: 20190503, end: 20191206

REACTIONS (3)
  - Endophthalmitis [Recovered/Resolved with Sequelae]
  - Wrong technique in product usage process [Recovered/Resolved]
  - Blindness [Recovered/Resolved with Sequelae]

NARRATIVE: CASE EVENT DATE: 20191206
